FAERS Safety Report 17816515 (Version 1)
Quarter: 2020Q2

REPORT INFORMATION
  Report Type: Spontaneous
  Country: US (occurrence: US)
  Receive Date: 20200522
  Receipt Date: 20200522
  Transmission Date: 20200714
  Serious: No
  Sender: FDA-Public Use
  Company Number: US-PFIZER INC-2020203728

PATIENT
  Age: 69 Year
  Sex: Female

DRUGS (9)
  1. ASPERCREME PAIN RELIEVING [Concomitant]
     Active Substance: TROLAMINE SALICYLATE
     Dosage: UNK (ASPERCREME 10 % CREAM (G))
  2. ASPIRIN EC [Concomitant]
     Active Substance: ASPIRIN
     Dosage: 81 MG (LOW DOSE ASPIRIN EC 81 MG TABLET DR)
  3. SYSTANE (HYPROMELLOSE 2910 (4000 MPA.S)) [Concomitant]
     Active Substance: HYPROMELLOSE 2910 (4000 MPA.S)
     Dosage: UNK (SYSTANE 0.3%-0.4% DROPS)
  4. OXYCODONE HYDROCHLORIDE. [Concomitant]
     Active Substance: OXYCODONE HYDROCHLORIDE
     Dosage: 5 MG
  5. EXEMESTANE. [Concomitant]
     Active Substance: EXEMESTANE
     Dosage: 25 MG
  6. IBRANCE [Suspect]
     Active Substance: PALBOCICLIB
     Indication: BREAST CANCER FEMALE
     Dosage: 125 MG, DAILY FOR 21 DAYS
     Route: 048
     Dates: start: 20191223
  7. COLD + ALLERGY [CHLORPHENAMINE MALEATE;PHENYLEPHRINE HYDROCHLORIDE] [Concomitant]
     Dosage: UNK (COLD + ALLERGY PE 4MG-10MG TABLET)
  8. IBUPROFEN. [Concomitant]
     Active Substance: IBUPROFEN
     Dosage: 200 MG
  9. CALCIUM+D3 [Concomitant]
     Active Substance: CALCIUM\CHOLECALCIFEROL
     Dosage: UNK (CALCIUM 1000 + D3 1000MG-800 TABLET)

REACTIONS (1)
  - Renal function test abnormal [Unknown]
